FAERS Safety Report 5888895-6 (Version None)
Quarter: 2008Q3

REPORT INFORMATION
  Report Type: 
  Country: None (occurrence: None)
  Receive Date: 20080919
  Receipt Date: 20080912
  Transmission Date: 20090109
  Serious: Yes (Other)
  Sender: FDA-Public Use
  Company Number: PHHY2008FR10468

PATIENT
  Sex: Male
  Weight: 89 kg

DRUGS (3)
  1. ZOMETA [Suspect]
     Indication: PROSTATE CANCER METASTATIC
     Dosage: 4 MG, QMO
     Dates: start: 20060704, end: 20060226
  2. AREDIA [Suspect]
     Indication: PROSTATE CANCER METASTATIC
     Dosage: 3 INJECTIONS
  3. ANDROGENS [Concomitant]
     Dosage: EVERY TRIMESTER

REACTIONS (2)
  - OSTEONECROSIS [None]
  - TOOTH EXTRACTION [None]
